FAERS Safety Report 24747086 (Version 3)
Quarter: 2025Q1

REPORT INFORMATION
  Report Type: Report from Study
  Country: CO (occurrence: CO)
  Receive Date: 20241218
  Receipt Date: 20250220
  Transmission Date: 20250409
  Serious: Yes (Hospitalization)
  Sender: UCB
  Company Number: CO-UCBSA-2024065595

PATIENT
  Age: 77 Year
  Sex: Male

DRUGS (6)
  1. ROTIGOTINE [Suspect]
     Active Substance: ROTIGOTINE
     Indication: Parkinson^s disease
     Dosage: 8 MILLIGRAM, ONCE DAILY (QD)
     Route: 062
     Dates: start: 20190923, end: 20210531
  2. ROTIGOTINE [Suspect]
     Active Substance: ROTIGOTINE
     Dosage: 16 MILLIGRAM, ONCE DAILY (QD)
     Route: 062
     Dates: start: 20210601, end: 20230614
  3. ROTIGOTINE [Suspect]
     Active Substance: ROTIGOTINE
     Dosage: 8 MILLIGRAM, ONCE DAILY (QD)
     Route: 062
     Dates: start: 20230615
  4. CARBIDOPA\LEVODOPA [Concomitant]
     Active Substance: CARBIDOPA\LEVODOPA
     Indication: Product used for unknown indication
  5. QUETIAPINE [Concomitant]
     Active Substance: QUETIAPINE
     Indication: Product used for unknown indication
  6. AMANTADINE [Concomitant]
     Active Substance: AMANTADINE
     Indication: Product used for unknown indication

REACTIONS (5)
  - Injury [Recovered/Resolved]
  - Fall [Recovered/Resolved]
  - Swelling face [Not Recovered/Not Resolved]
  - Abnormal behaviour [Not Recovered/Not Resolved]
  - Off label use [Unknown]

NARRATIVE: CASE EVENT DATE: 20190923
